FAERS Safety Report 17291634 (Version 1)
Quarter: 2020Q1

REPORT INFORMATION
  Report Type: Spontaneous
  Country: US (occurrence: US)
  Receive Date: 20191231
  Receipt Date: 20191231
  Transmission Date: 20200409
  Serious: Yes (Other)
  Sender: FDA-Public Use
  Company Number: None

PATIENT

DRUGS (6)
  1. VITAMIN E [Concomitant]
     Active Substance: .ALPHA.-TOCOPHEROL
  2. RANITIDINE. [Suspect]
     Active Substance: RANITIDINE
  3. BETA CAROTINE [Concomitant]
  4. VITAMIN C [Concomitant]
     Active Substance: ASCORBIC ACID
  5. VITAMIN B12 [Concomitant]
     Active Substance: CYANOCOBALAMIN
  6. BIOTINE [Concomitant]

REACTIONS (4)
  - Gastrooesophageal reflux disease [None]
  - Abdominal discomfort [None]
  - Malaise [None]
  - Functional gastrointestinal disorder [None]

NARRATIVE: CASE EVENT DATE: 20151009
